FAERS Safety Report 9233887 (Version 2)
Quarter: 2013Q2

REPORT INFORMATION
  Report Type: Spontaneous
  Country: FR (occurrence: FR)
  Receive Date: 20130416
  Receipt Date: 20130611
  Transmission Date: 20140414
  Serious: Yes (Hospitalization)
  Sender: FDA-Public Use
  Company Number: FR-SANOFI-AVENTIS-2013SA037515

PATIENT
  Age: 79 Year
  Sex: Male

DRUGS (2)
  1. ELOXATINE [Suspect]
     Indication: PRODUCT USED FOR UNKNOWN INDICATION
     Dosage: FREQUENCY- ON 2 HOURS?FORM- INFUSION
     Route: 042
     Dates: start: 20130326, end: 20130326
  2. LEVOFOLINATE [Concomitant]

REACTIONS (3)
  - Oxygen saturation decreased [Recovered/Resolved]
  - Pyrexia [Recovered/Resolved]
  - Hypertension [Recovered/Resolved]
